FAERS Safety Report 25760117 (Version 1)
Quarter: 2025Q3

REPORT INFORMATION
  Report Type: Spontaneous
  Country: GB (occurrence: GB)
  Receive Date: 20250904
  Receipt Date: 20250904
  Transmission Date: 20251021
  Serious: Yes (Life-Threatening, Hospitalization)
  Sender: MYLAN
  Company Number: GB-MYLANLABS-2025M1074548

PATIENT
  Age: 14 Day
  Sex: Female
  Weight: 0.68 kg

DRUGS (11)
  1. HYDROCORTISONE [Suspect]
     Active Substance: HYDROCORTISONE
     Indication: Prophylaxis
     Dosage: 0.5 MILLIGRAM/KILOGRAM, BID, 7 DAYS
  2. HYDROCORTISONE [Suspect]
     Active Substance: HYDROCORTISONE
     Dosage: 0.5 MILLIGRAM/KILOGRAM, QD, 3 DAYS
  3. AMIKACIN [Concomitant]
     Active Substance: AMIKACIN
     Indication: Prophylaxis
  4. PENICILLIN G [Concomitant]
     Active Substance: PENICILLIN G
     Indication: Prophylaxis
  5. PIPERACILLIN AND TAZOBACTAM [Concomitant]
     Active Substance: PIPERACILLIN SODIUM\TAZOBACTAM SODIUM
     Indication: Prophylaxis
  6. TEICOPLANIN [Concomitant]
     Active Substance: TEICOPLANIN
     Indication: Prophylaxis
  7. MEROPENEM [Concomitant]
     Active Substance: MEROPENEM
     Indication: Prophylaxis
  8. CLOXACILLIN [Concomitant]
     Active Substance: CLOXACILLIN
     Indication: Prophylaxis
  9. DOPAMINE [Concomitant]
     Active Substance: DOPAMINE HYDROCHLORIDE
     Indication: Hypotension
     Dosage: 15 MICROGRAM/KILOGRAM, QMINUTE, INFUSION
  10. CAFFEINE CITRATE [Concomitant]
     Active Substance: CAFFEINE CITRATE
     Indication: Premature baby
  11. ACETAMINOPHEN [Concomitant]
     Active Substance: ACETAMINOPHEN
     Indication: Patent ductus arteriosus

REACTIONS (1)
  - Hypertrophic cardiomyopathy [Recovered/Resolved]
